FAERS Safety Report 14948520 (Version 2)
Quarter: 2018Q3

REPORT INFORMATION
  Report Type: Spontaneous
  Country: FR (occurrence: FR)
  Receive Date: 20180529
  Receipt Date: 20180820
  Transmission Date: 20181010
  Serious: Yes (Hospitalization)
  Sender: FDA-Public Use
  Company Number: FR-TEVA-2018-FR-899220

PATIENT
  Age: 51 Year
  Sex: Male
  Weight: 51 kg

DRUGS (8)
  1. GENTAMICINE PANPHARMA [Suspect]
     Active Substance: GENTAMICIN
     Indication: MEDIASTINITIS
     Dates: start: 20180112, end: 20180123
  2. FLUCONAZOLE ARROW [Suspect]
     Active Substance: FLUCONAZOLE
     Indication: MEDIASTINITIS
     Route: 048
     Dates: start: 20180124
  3. ZYVOXID 600 MG, COMPRIM? PELLICUL? [Suspect]
     Active Substance: LINEZOLID
     Indication: MEDIASTINITIS
     Route: 048
     Dates: start: 20180124
  4. PIPERACILLINE TAZOBACTAM MYLAN [Suspect]
     Active Substance: PIPERACILLIN SODIUM\TAZOBACTAM SODIUM
     Indication: MEDIASTINITIS
     Dates: start: 20180112, end: 20180123
  5. AMIKACINE MYLAN [Suspect]
     Active Substance: AMIKACIN
     Indication: MEDIASTINITIS
     Route: 042
     Dates: start: 20180124
  6. VANCOMYCIN [Suspect]
     Active Substance: VANCOMYCIN
     Indication: MEDIASTINITIS
     Route: 042
     Dates: start: 20180124
  7. TIENAM [Suspect]
     Active Substance: CILASTATIN SODIUM\IMIPENEM
     Indication: MEDIASTINITIS
     Route: 067
     Dates: start: 20180124
  8. VANCOMYCINE SANDOZ [Suspect]
     Active Substance: VANCOMYCIN
     Indication: MEDIASTINITIS
     Route: 048
     Dates: start: 20180112, end: 20180123

REACTIONS (3)
  - Anaemia [Recovered/Resolved]
  - Thrombocytopenia [Recovered/Resolved]
  - Agranulocytosis [Recovered/Resolved]

NARRATIVE: CASE EVENT DATE: 20180226
